FAERS Safety Report 8599519-1 (Version None)
Quarter: 2012Q3

REPORT INFORMATION
  Report Type: 
  Country: None (occurrence: None)
  Receive Date: 20120816
  Receipt Date: 20120625
  Transmission Date: 20120928
  Serious: No
  Sender: FDA-Public Use
  Company Number: US-ALLERGAN-1208792US

PATIENT
  Age: 60 Year
  Sex: Female

DRUGS (1)
  1. LASTACAFT [Suspect]
     Indication: HYPERSENSITIVITY
     Dosage: 2 GTT, QD
     Route: 047
     Dates: start: 20120610, end: 20120621

REACTIONS (2)
  - EYELIDS PRURITUS [None]
  - EYELID OEDEMA [None]
